FAERS Safety Report 23953581 (Version 1)
Quarter: 2024Q2

REPORT INFORMATION
  Report Type: Report from Study
  Country: CA (occurrence: CA)
  Receive Date: 20240608
  Receipt Date: 20240608
  Transmission Date: 20240716
  Serious: Yes (Other)
  Sender: FDA-Public Use
  Company Number: CA-AMGEN-CANSL2024091658

PATIENT
  Age: 68 Year
  Sex: Female
  Weight: 69.841 kg

DRUGS (36)
  1. ENBREL [Suspect]
     Active Substance: BENZYL ALCOHOL\ETANERCEPT
     Indication: Rheumatoid arthritis
     Dosage: 50 MILLIGRAM, QWK
     Route: 058
     Dates: start: 20130723, end: 202305
  2. RITUXIMAB [Suspect]
     Active Substance: RITUXIMAB
     Indication: Product used for unknown indication
     Route: 065
  3. ERELZI [Suspect]
     Active Substance: ETANERCEPT-SZZS
     Indication: Rheumatoid arthritis
     Dosage: 50 MILLIGRAM, QWK
     Route: 058
  4. METHOTREXATE [Concomitant]
     Active Substance: METHOTREXATE
     Dosage: 2.5 MILLIGRAM, 3 TABLETS EVERY WEEK
     Route: 048
     Dates: start: 2007
  5. METHOTREXATE [Concomitant]
     Active Substance: METHOTREXATE
     Dosage: 2.5 MILLIGRAM, DOSE REDUCED
     Route: 048
     Dates: start: 2007
  6. FOLIC ACID [Concomitant]
     Active Substance: FOLIC ACID
     Dosage: 5 MILLIGRAM, QWK
     Route: 048
  7. SULFASALAZINE [Concomitant]
     Active Substance: SULFASALAZINE
     Dosage: 1000 MILLIGRAM, BID
     Route: 048
  8. PERINDOPRIL [Concomitant]
     Active Substance: PERINDOPRIL
     Dosage: 4 MILLIGRAM, QD
     Route: 048
  9. PREDNISONE [Concomitant]
     Active Substance: PREDNISONE
  10. CETIRIZINE HYDROCHLORIDE [Concomitant]
     Active Substance: CETIRIZINE HYDROCHLORIDE
     Dosage: 20 MILLIGRAM, QD, PRN
     Route: 048
  11. CRESTOR [Concomitant]
     Active Substance: ROSUVASTATIN CALCIUM
  12. EZETIMIBE [Concomitant]
     Active Substance: EZETIMIBE
  13. THC PROSTAFLO [Concomitant]
  14. TRAMADOL [Concomitant]
     Active Substance: TRAMADOL\TRAMADOL HYDROCHLORIDE
  15. MELOXICAM [Concomitant]
     Active Substance: MELOXICAM
     Dosage: PRN
     Route: 048
  16. ACTONEL [Concomitant]
     Active Substance: RISEDRONATE SODIUM
     Dosage: 150 MILLIGRAM, QMO
     Dates: start: 2011
  17. VITAMIN D [Concomitant]
     Active Substance: VITAMIN D NOS
  18. PROLINE [Concomitant]
     Active Substance: PROLINE
     Dosage: 60 MILLIGRAM, Q6MO
     Route: 058
  19. PANTOPRAZOLE SODIUM [Concomitant]
     Active Substance: PANTOPRAZOLE SODIUM
     Dosage: 40 MILLIGRAM, QD
  20. CYMBALTA [Concomitant]
     Active Substance: DULOXETINE HYDROCHLORIDE
     Dosage: 30 MILLIGRAM, QD
     Route: 048
  21. LYRICA [Concomitant]
     Active Substance: PREGABALIN
     Dosage: 75 MILLIGRAM, BID
     Route: 048
  22. LINACLOTIDE [Concomitant]
     Active Substance: LINACLOTIDE
  23. GOLD [Concomitant]
     Active Substance: GOLD
  24. ARAVA [Concomitant]
     Active Substance: LEFLUNOMIDE
  25. IMURAN [Concomitant]
     Active Substance: AZATHIOPRINE
  26. CHLOROQUINE [Concomitant]
     Active Substance: CHLOROQUINE
  27. PLAQUENIL [Concomitant]
     Active Substance: HYDROXYCHLOROQUINE SULFATE
  28. DICLOFENAC [Concomitant]
     Active Substance: DICLOFENAC
  29. HYDROXYCHLOROQUINE [Concomitant]
     Active Substance: HYDROXYCHLOROQUINE
  30. FORTEO [Concomitant]
     Active Substance: TERIPARATIDE
  31. PNEUMOVAX 23 [Concomitant]
     Active Substance: PNEUMOCOCCAL VACCINE, POLYVALENT 23
     Dosage: UNK
     Dates: start: 2013
  32. PREVNAR 13 [Concomitant]
     Active Substance: STREPTOCOCCUS PNEUMONIAE TYPE 1 CAPSULAR POLYSACCHARIDE DIPHTHERIA CRM197 PROTEIN CONJUGATE ANTIGEN\
     Dosage: UNK
     Dates: start: 2015
  33. SHINGRIX [Concomitant]
     Active Substance: RECOMBINANT VARICELLA ZOSTER VIRUS (VZV) GLYCOPROTEIN E
     Dosage: UNK
     Dates: start: 2018
  34. COVID-19 vaccine [Concomitant]
     Dosage: UNK
     Dates: start: 2021
  35. MORPHINE [Concomitant]
     Active Substance: MORPHINE
  36. HERBALS\TETRAHYDROCANNABINOL UNSPECIFIED [Concomitant]
     Active Substance: HERBALS\TETRAHYDROCANNABINOL UNSPECIFIED

REACTIONS (26)
  - Sialoadenitis [Recovered/Resolved]
  - Cataract [Unknown]
  - Urticaria [Recovered/Resolved]
  - Injection site reaction [Recovered/Resolved]
  - Intervertebral disc degeneration [Unknown]
  - Hypergammaglobulinaemia benign monoclonal [Unknown]
  - Hypertension [Unknown]
  - Therapy interrupted [Unknown]
  - Dyslipidaemia [Unknown]
  - Non-alcoholic fatty liver [Unknown]
  - Musculoskeletal discomfort [Unknown]
  - Pain [Not Recovered/Not Resolved]
  - Pain in extremity [Unknown]
  - Constipation [Not Recovered/Not Resolved]
  - Fibromyalgia [Not Recovered/Not Resolved]
  - Weight increased [Unknown]
  - Ill-defined disorder [Unknown]
  - Therapeutic response changed [Unknown]
  - Large intestine polyp [Unknown]
  - Nodule [Unknown]
  - Diverticulum [Unknown]
  - Affective disorder [Unknown]
  - Arthropathy [Unknown]
  - Rotator cuff syndrome [Unknown]
  - Thyroid disorder [Unknown]
  - Neutrophil count decreased [Unknown]

NARRATIVE: CASE EVENT DATE: 20140101
